FAERS Safety Report 9232614 (Version 1)
Quarter: 2013Q2

REPORT INFORMATION
  Report Type: Spontaneous
  Country: TW (occurrence: None)
  Receive Date: 20130412
  Receipt Date: 20130412
  Transmission Date: 20140414
  Serious: Yes (Hospitalization, Other)
  Sender: FDA-Public Use
  Company Number: B0882501A

PATIENT
  Age: 58 Year
  Sex: Male

DRUGS (7)
  1. ACITRETIN [Suspect]
     Indication: KERATOSIS FOLLICULAR
  2. DESLORATADINE [Concomitant]
  3. ATROVASTATI CALCIUM [Concomitant]
  4. VALSARTAN [Concomitant]
  5. AMBROXOL [Concomitant]
  6. DEXTROMETHORPHAN HBR [Concomitant]
  7. THEOPHYLLINE [Concomitant]

REACTIONS (10)
  - Small intestinal perforation [None]
  - Dry mouth [None]
  - Dry skin [None]
  - Abdominal pain [None]
  - Leukocytosis [None]
  - Ileus [None]
  - Abdominal adhesions [None]
  - Enterocolitis [None]
  - Jejunal perforation [None]
  - Mesenteric abscess [None]
